FAERS Safety Report 7343179-4 (Version None)
Quarter: 2011Q1

REPORT INFORMATION
  Report Type: 
  Country: None (occurrence: None)
  Receive Date: 20110310
  Receipt Date: 20110228
  Transmission Date: 20110831
  Serious: Yes (Hospitalization, Other)
  Sender: FDA-Public Use
  Company Number: PHHO2010DE15843

PATIENT
  Sex: Male
  Weight: 135 kg

DRUGS (6)
  1. BLINDED ALISKIREN [Suspect]
     Indication: CARDIAC FAILURE
     Dosage: CODE NOT BROKEN
     Route: 048
     Dates: start: 20100408
  2. COMPARATOR ENALAPRIL [Suspect]
     Indication: CARDIAC FAILURE
     Dosage: UNK
     Dates: start: 20100202, end: 20100308
  3. INSPRA [Suspect]
     Indication: CARDIAC FAILURE
     Dosage: UNK
     Dates: start: 20090601, end: 20101001
  4. BLINDED NO TREATMENT RECEIVED [Suspect]
     Indication: CARDIAC FAILURE
     Dosage: CODE NOT BROKEN
     Route: 048
     Dates: start: 20100408
  5. BLINDED ENALAPRIL [Suspect]
     Indication: CARDIAC FAILURE
     Dosage: CODE NOT BROKEN
     Route: 048
     Dates: start: 20100408
  6. ALISKIREN [Suspect]
     Indication: CARDIAC FAILURE
     Dosage: UNK
     Dates: start: 20100309, end: 20100407

REACTIONS (7)
  - DYSPNOEA EXERTIONAL [None]
  - LOCALISED OEDEMA [None]
  - DIZZINESS [None]
  - HYPOTENSION [None]
  - OEDEMA PERIPHERAL [None]
  - CONCOMITANT DISEASE PROGRESSION [None]
  - CARDIAC FAILURE [None]
